FAERS Safety Report 21665467 (Version 1)
Quarter: 2022Q4

REPORT INFORMATION
  Report Type: Report from Study
  Country: US (occurrence: US)
  Receive Date: 20221201
  Receipt Date: 20221201
  Transmission Date: 20230113
  Serious: Yes (Hospitalization, Other)
  Sender: FDA-Public Use
  Company Number: US-ABBVIE-4218738

PATIENT
  Sex: Female

DRUGS (1)
  1. HUMIRA [Suspect]
     Active Substance: ADALIMUMAB
     Indication: Rheumatoid arthritis
     Route: 058

REACTIONS (9)
  - Surgery [Unknown]
  - Arthralgia [Unknown]
  - Renal impairment [Unknown]
  - Musculoskeletal disorder [Unknown]
  - Discomfort [Unknown]
  - Osteoarthritis [Unknown]
  - Radiculopathy [Unknown]
  - Liver function test increased [Unknown]
  - Hepatic function abnormal [Unknown]
